FAERS Safety Report 23416029 (Version 1)
Quarter: 2024Q1

REPORT INFORMATION
  Report Type: Spontaneous
  Country: KR (occurrence: KR)
  Receive Date: 20240118
  Receipt Date: 20240118
  Transmission Date: 20240409
  Serious: Yes (Other)
  Sender: FDA-Public Use
  Company Number: KR-GLAXOSMITHKLINE-KR2024GSK007420

PATIENT

DRUGS (2)
  1. VENTOLIN [Suspect]
     Active Substance: ALBUTEROL SULFATE
     Indication: Asthmatic crisis
     Dosage: 2.5 MG, QD
     Route: 048
     Dates: start: 20200505, end: 20200514
  2. VENTOLIN [Suspect]
     Active Substance: ALBUTEROL SULFATE
     Dosage: UNK (DOSE DECREASED)

REACTIONS (4)
  - Neuropathy peripheral [Recovered/Resolved]
  - Palpitations [Recovered/Resolved]
  - Dizziness [Recovered/Resolved]
  - Product use in unapproved indication [Unknown]

NARRATIVE: CASE EVENT DATE: 20200505
